FAERS Safety Report 5297053-8 (Version None)
Quarter: 2007Q1

REPORT INFORMATION
  Report Type: 
  Country: None (occurrence: None)
  Receive Date: 20070201
  Receipt Date: 20061003
  Transmission Date: 20070707
  Serious: No
  Sender: FDA-Public Use
  Company Number: 2006PV022469

PATIENT
  Age: 73 Year
  Sex: Male
  Weight: 95.2554 kg

DRUGS (6)
  1. BYETTA [Suspect]
     Indication: DIABETES MELLITUS NON-INSULIN-DEPENDENT
     Dosage: SEE IMAGE
     Dates: start: 20060401, end: 20060601
  2. BYETTA [Suspect]
     Indication: DIABETES MELLITUS NON-INSULIN-DEPENDENT
     Dosage: SEE IMAGE
     Dates: start: 20060601, end: 20060901
  3. BYETTA [Suspect]
     Indication: DIABETES MELLITUS NON-INSULIN-DEPENDENT
     Dosage: SEE IMAGE
     Dates: start: 20060901, end: 20061003
  4. GLIPIZIDE [Concomitant]
  5. AVANDIA [Concomitant]
  6. METFORMIN HCL [Concomitant]

REACTIONS (3)
  - DECREASED APPETITE [None]
  - FEELING ABNORMAL [None]
  - NAUSEA [None]
